FAERS Safety Report 13798050 (Version 2)
Quarter: 2017Q3

REPORT INFORMATION
  Report Type: Spontaneous
  Country: US (occurrence: US)
  Receive Date: 20170727
  Receipt Date: 20170807
  Transmission Date: 20171127
  Serious: No
  Sender: FDA-Public Use
  Company Number: US-PFIZER INC-2017324309

PATIENT
  Age: 71 Year
  Sex: Female
  Weight: 81.19 kg

DRUGS (2)
  1. METHOTREXATE SODIUM. [Suspect]
     Active Substance: METHOTREXATE SODIUM
     Indication: RHEUMATOID ARTHRITIS
     Dosage: 0.7 ML, UNK (INJECTABLE)
     Route: 058
     Dates: end: 201706
  2. MELOXICAM. [Concomitant]
     Active Substance: MELOXICAM
     Indication: INFLAMMATION
     Dosage: 5 MG, DAILY
     Route: 048

REACTIONS (2)
  - Hepatic enzyme increased [Unknown]
  - Drug effect incomplete [Unknown]
